FAERS Safety Report 15126479 (Version 4)
Quarter: 2019Q1

REPORT INFORMATION
  Report Type: Report from Study
  Country: None (occurrence: US)
  Receive Date: 20180710
  Receipt Date: 20190218
  Transmission Date: 20190417
  Serious: Yes (Hospitalization, Other)
  Sender: FDA-Public Use
  Company Number: US-ABBVIE-18K-163-2413800-00

PATIENT
  Age: 56 Year
  Sex: Female
  Weight: 79.45 kg

DRUGS (1)
  1. HUMIRA [Suspect]
     Active Substance: ADALIMUMAB
     Indication: RHEUMATOID ARTHRITIS
     Route: 058
     Dates: end: 2018

REACTIONS (5)
  - Hernia [Not Recovered/Not Resolved]
  - Injection site pain [Not Recovered/Not Resolved]
  - Wound [Unknown]
  - Staphylococcal infection [Unknown]
  - Medical device removal [Unknown]

NARRATIVE: CASE EVENT DATE: 20180727
